FAERS Safety Report 7972985-8 (Version None)
Quarter: 2011Q4

REPORT INFORMATION
  Report Type: 
  Country: None (occurrence: None)
  Receive Date: 20111213
  Receipt Date: 20111206
  Transmission Date: 20120403
  Serious: Yes (Other)
  Sender: FDA-Public Use
  Company Number: US-PFIZER INC-2011269971

PATIENT
  Sex: Female
  Weight: 102.04 kg

DRUGS (20)
  1. ENOXAPARIN [Concomitant]
     Dosage: 150 MG, DAILY
     Route: 058
  2. CALCIUM CITRATE [Concomitant]
     Dosage: DAILY
  3. LAMOTRIGINE [Concomitant]
     Dosage: 100 MG TABLET, 1 TABLET AT BEDTIME FOR ONE WEEK
     Route: 048
  4. LAMICTAL [Concomitant]
     Indication: MOOD SWINGS
     Dosage: 150 MG, UNK
  5. ACIDOPHILUS [Concomitant]
     Dosage: DAILY
  6. VITAMIN D [Concomitant]
     Dosage: DAILY
  7. LATANOPROST [Suspect]
     Indication: OPEN ANGLE GLAUCOMA
     Dosage: EVERY NIGHT
     Route: 047
  8. LAMOTRIGINE [Concomitant]
     Dosage: 100 MG TABLET, 1 1/2 FOR 1 WEEK
  9. LAMOTRIGINE [Concomitant]
     Dosage: 100 MG TABLET, 2 TABLETS AT BED TIME
  10. METAXALONE [Concomitant]
     Dosage: 800 MG, 3X/DAY AS NEEDED
     Route: 048
  11. COUMADIN [Concomitant]
     Dosage: 5 MG TABLET, TAKE 1 TABLET DAILY AS DIRECTED USE
     Route: 048
  12. SYNTHROID [Concomitant]
     Indication: HYPOTHYROIDISM
     Dosage: 150 UG, 1X/DAY
     Route: 048
  13. PRILOSEC [Concomitant]
     Indication: GASTROOESOPHAGEAL REFLUX DISEASE
     Dosage: 20 MG, 2X/DAY
     Route: 048
  14. WARFARIN [Concomitant]
     Indication: PULMONARY EMBOLISM
     Dosage: 4 MG, TAKE 1 TABLET DAILY AS DIRECTED
     Route: 048
  15. DILTIAZEM [Concomitant]
     Indication: HYPERTENSION
     Dosage: 180 MG, 1X/DAY
     Route: 048
  16. CLONAZEPAM [Concomitant]
     Indication: ANXIETY
     Dosage: 1 MG, 3X/DAY
  17. XALATAN [Concomitant]
     Dosage: 0.005 %, 1DROP IN BOTH EYES AT BEDTIME
  18. FISH OIL [Concomitant]
     Dosage: DAILY
     Route: 048
  19. MAGNESIUM [Concomitant]
     Dosage: DAILY
  20. COUMADIN [Concomitant]
     Dosage: 1 MG TABLET, TAKE 3 TABLET DAILY
     Route: 048

REACTIONS (3)
  - MYALGIA [None]
  - VISUAL ACUITY REDUCED [None]
  - ARTHRALGIA [None]
